FAERS Safety Report 8709792 (Version 2)
Quarter: 2012Q4

REPORT INFORMATION
  Report Type: 
  Country: FR (occurrence: FR)
  Receive Date: 20120806
  Receipt Date: 20120907
  Transmission Date: 20130627
  Serious: Yes (Other)
  Sender: FDA-Public Use
  Company Number: FR-JNJFOC-20120802514

PATIENT
  Age: 64 Year
  Sex: Female
  Weight: 64 kg

DRUGS (5)
  1. XARELTO [Suspect]
     Indication: THROMBOSIS PROPHYLAXIS
     Route: 048
     Dates: start: 20120427, end: 20120504
  2. XARELTO [Suspect]
     Indication: KNEE ARTHROPLASTY
     Route: 048
     Dates: start: 20120427, end: 20120504
  3. DAFALGAN [Concomitant]
  4. LODOZ [Concomitant]
  5. VANCOMYCIN [Concomitant]
     Route: 042
     Dates: start: 20120427, end: 20120427

REACTIONS (2)
  - Drug ineffective [Not Recovered/Not Resolved]
  - Thrombosis [Recovered/Resolved]
